FAERS Safety Report 4893328-2 (Version None)
Quarter: 2006Q1

REPORT INFORMATION
  Report Type: 
  Country: None (occurrence: None)
  Receive Date: 20060127
  Receipt Date: 20060116
  Transmission Date: 20060701
  Serious: Yes (Hospitalization, Other)
  Sender: FDA-Public Use
  Company Number: IN-ABBOTT-06P-078-0322994-00

PATIENT
  Age: 10 Year
  Sex: Male

DRUGS (7)
  1. CYCLOSPORINE [Suspect]
     Indication: IMMUNOSUPPRESSION
  2. ANTILYMPHOCYTE IMMUNOGLOBULIN (HORSE) [Suspect]
     Indication: IMMUNOSUPPRESSION
     Route: 042
  3. PREDNISOLONE [Concomitant]
     Indication: PROPHYLAXIS
  4. FLUCONAZOLE [Concomitant]
     Indication: PROPHYLAXIS
     Route: 048
  5. CIPROFLOXACIN [Concomitant]
     Indication: PROPHYLAXIS
     Route: 048
  6. BLOOD, WHOLE [Concomitant]
     Indication: APLASTIC ANAEMIA
  7. PLATELETS [Concomitant]
     Indication: APLASTIC ANAEMIA

REACTIONS (1)
  - ACUTE MYELOID LEUKAEMIA [None]
